FAERS Safety Report 6100312-X (Version None)
Quarter: 2009Q1

REPORT INFORMATION
  Report Type: 
  Country: None (occurrence: None)
  Receive Date: 20090303
  Receipt Date: 20090224
  Transmission Date: 20090719
  Serious: Yes (Hospitalization)
  Sender: FDA-Public Use
  Company Number: GB-MERCK-0902GBR00006

PATIENT
  Age: 66 Year
  Sex: Female
  Weight: 96 kg

DRUGS (12)
  1. ZETIA [Suspect]
     Indication: BLOOD CHOLESTEROL INCREASED
     Route: 048
     Dates: start: 20080807, end: 20081020
  2. MODAFINIL [Concomitant]
     Indication: SLEEP DISORDER
     Route: 065
     Dates: start: 20050414
  3. ESOMEPRAZOLE MAGNESIUM [Concomitant]
     Indication: GASTROOESOPHAGEAL REFLUX DISEASE
     Route: 065
     Dates: start: 20050707
  4. PRAMIPEXOLE DIHYDROCHLORIDE [Concomitant]
     Indication: RESTLESS LEGS SYNDROME
     Route: 065
     Dates: start: 20080313
  5. PRAMIPEXOLE DIHYDROCHLORIDE [Concomitant]
     Indication: SLEEP DISORDER
     Route: 065
     Dates: start: 20080313
  6. RAMIPRIL [Concomitant]
     Indication: HYPERTENSION
     Route: 065
     Dates: start: 20080515
  7. CELECOXIB [Concomitant]
     Indication: MYALGIA
     Route: 065
     Dates: start: 20070517
  8. DOTHIEPIN HYDROCHLORIDE [Concomitant]
     Indication: SLEEP DISORDER
     Route: 065
     Dates: start: 20070920
  9. PREDNISOLONE [Concomitant]
     Route: 065
  10. SODIUM OXYBATE [Concomitant]
     Route: 065
  11. FEXOFENADINE HYDROCHLORIDE [Concomitant]
     Indication: HYPERSENSITIVITY
     Route: 065
  12. EPINEPHRINE HYDROCHLORIDE [Concomitant]
     Indication: ANAPHYLACTIC REACTION
     Route: 065

REACTIONS (2)
  - IDIOPATHIC THROMBOCYTOPENIC PURPURA [None]
  - RASH [None]
